FAERS Safety Report 8140505-3 (Version None)
Quarter: 2012Q1

REPORT INFORMATION
  Report Type: 
  Country: None (occurrence: None)
  Receive Date: 20120216
  Receipt Date: 20120208
  Transmission Date: 20120608
  Serious: Yes (Other)
  Sender: FDA-Public Use
  Company Number: US-CELGENEUS-163-21880-11122375

PATIENT
  Sex: Male

DRUGS (23)
  1. REVLIMID [Suspect]
     Dosage: 10 MILLIGRAM
     Route: 048
     Dates: start: 20101201
  2. CYMBALTA [Concomitant]
     Route: 065
  3. DEXAMETHASONE [Concomitant]
     Route: 065
  4. MIRTAZAPINE [Concomitant]
     Route: 065
  5. ASPIRIN [Concomitant]
     Route: 065
  6. CALCIUM [Concomitant]
     Route: 065
  7. CLOPIDOGREL [Concomitant]
     Route: 065
  8. FOLIC ACID [Concomitant]
     Route: 065
  9. GLIPIZIDE [Concomitant]
     Route: 065
  10. METFORMIN HCL [Concomitant]
     Route: 065
  11. ERGOCALCIFER [Concomitant]
     Route: 065
  12. LISINOPRIL [Concomitant]
     Route: 065
  13. NOVOLIN 70/30 [Concomitant]
     Route: 065
  14. REVLIMID [Suspect]
     Indication: MULTIPLE MYELOMA
     Dosage: 15 MILLIGRAM
     Route: 048
     Dates: start: 20100801, end: 20100101
  15. CENTRUM [Concomitant]
     Route: 065
  16. TAMSULOSIN HCL [Concomitant]
     Route: 065
  17. VALACYCLOVIR [Concomitant]
     Route: 065
  18. PREVACID [Concomitant]
     Route: 065
  19. PLAVIX [Concomitant]
     Indication: ANTICOAGULANT THERAPY
     Route: 065
  20. REVLIMID [Suspect]
     Dosage: 10 MILLIGRAM
     Route: 048
     Dates: start: 20111214
  21. CALCIUM CARBONATE [Concomitant]
     Route: 065
  22. LASIX [Concomitant]
     Route: 065
  23. CARVEDILOL [Concomitant]
     Route: 065

REACTIONS (3)
  - DRUG DOSE OMISSION [None]
  - HAEMORRHAGE [None]
  - CONTUSION [None]
